FAERS Safety Report 6535878-9 (Version None)
Quarter: 2010Q1

REPORT INFORMATION
  Report Type: 
  Country: None (occurrence: None)
  Receive Date: 20100106
  Receipt Date: 20091222
  Transmission Date: 20100710
  Serious: Yes (Death)
  Sender: FDA-Public Use
  Company Number: 1-21137883

PATIENT
  Age: 82 Year
  Sex: Male

DRUGS (1)
  1. FLO-PRED [Suspect]
     Indication: PEMPHIGOID
     Dosage: 30-60 MG, DAILY

REACTIONS (4)
  - AORTIC ANEURYSM RUPTURE [None]
  - FALL [None]
  - GASTRIC ULCER HAEMORRHAGE [None]
  - SHOCK [None]
